FAERS Safety Report 9638053 (Version 1)
Quarter: 2014Q2

REPORT INFORMATION
  Report Type: Spontaneous
  Country: US (occurrence: None)
  Receive Date: 20131021
  Receipt Date: 20131021
  Transmission Date: 20141212
  Serious: Yes (Hospitalization)
  Sender: FDA-Public Use
  Company Number: None

PATIENT
  Age: 82 Year
  Sex: Male
  Weight: 58.06 kg

DRUGS (4)
  1. OXALIPLATIN [Suspect]
     Indication: PANCREATIC CARCINOMA METASTATIC
     Dosage: IV EVERY 2 HOURS
     Route: 042
     Dates: start: 20130718, end: 20130919
  2. LEUCOVORIN [Suspect]
     Indication: PANCREATIC CARCINOMA METASTATIC
     Dosage: IV EVERY 2 HOURS
     Route: 042
     Dates: start: 20130718, end: 20130919
  3. FLUOROURACIL [Suspect]
     Indication: PANCREATIC CARCINOMA METASTATIC
     Dosage: IV EVERY 2 HOURS
     Route: 042
     Dates: start: 20130718, end: 20130919
  4. ABRAXANE [Suspect]
     Indication: PANCREATIC CARCINOMA METASTATIC
     Dosage: IV EVERY 2 HOURS
     Route: 042
     Dates: start: 20130718, end: 20130919

REACTIONS (2)
  - Jaundice cholestatic [None]
  - Cholangitis [None]
